FAERS Safety Report 12589323 (Version 1)
Quarter: 2016Q3

REPORT INFORMATION
  Report Type: Spontaneous
  Country: US (occurrence: US)
  Receive Date: 20160725
  Receipt Date: 20160725
  Transmission Date: 20161109
  Serious: No
  Sender: FDA-Public Use
  Company Number: US-JNJFOC-20160619293

PATIENT
  Age: 89 Year
  Sex: Female
  Weight: 62.14 kg

DRUGS (3)
  1. VISINE A [Suspect]
     Active Substance: NAPHAZOLINE HYDROCHLORIDE\PHENIRAMINE MALEATE
     Indication: MITE ALLERGY
     Dosage: 1 IN EACH EYE, 1 TIME DAILY, MID DAY
     Route: 047
     Dates: start: 20160611, end: 20160611
  2. VISINE A [Suspect]
     Active Substance: NAPHAZOLINE HYDROCHLORIDE\PHENIRAMINE MALEATE
     Indication: MYCOTIC ALLERGY
     Dosage: 1 IN EACH EYE, 1 TIME DAILY, MID DAY
     Route: 047
     Dates: start: 20160611, end: 20160611
  3. LOTEMAX [Concomitant]
     Active Substance: LOTEPREDNOL ETABONATE
     Indication: EYE INFECTION
     Route: 047

REACTIONS (4)
  - Ocular discomfort [Recovered/Resolved]
  - Product use issue [Recovered/Resolved]
  - Eye disorder [Recovered/Resolved]
  - Off label use [Recovered/Resolved]

NARRATIVE: CASE EVENT DATE: 20160611
